FAERS Safety Report 10418492 (Version 1)
Quarter: 2014Q3

REPORT INFORMATION
  Report Type: Report from Study
  Country: US (occurrence: US)
  Receive Date: 20140829
  Receipt Date: 20140829
  Transmission Date: 20150326
  Serious: Yes (Other)
  Sender: FDA-Public Use
  Company Number: US-BAXTER-2014BAX050998

PATIENT
  Age: 22 Year
  Sex: Female
  Weight: 74.91 kg

DRUGS (3)
  1. GAMMAGARD LIQUID [Suspect]
     Active Substance: HUMAN IMMUNOGLOBULIN G
     Indication: IMMUNODEFICIENCY COMMON VARIABLE
     Route: 058
     Dates: start: 201112
  2. DOXYCYCLINE. [Suspect]
     Active Substance: DOXYCYCLINE
     Indication: SINUSITIS
     Route: 048
     Dates: start: 201408, end: 201408
  3. DOXYCYCLINE. [Suspect]
     Active Substance: DOXYCYCLINE
     Indication: BRONCHITIS
     Route: 048
     Dates: start: 20140428, end: 201405

REACTIONS (2)
  - Bronchitis [Recovered/Resolved]
  - Sinusitis [Recovered/Resolved]

NARRATIVE: CASE EVENT DATE: 20140428
